FAERS Safety Report 7012071-7 (Version None)
Quarter: 2010Q3

REPORT INFORMATION
  Report Type: 
  Country: None (occurrence: None)
  Receive Date: 20100924
  Receipt Date: 20100914
  Transmission Date: 20110219
  Serious: Yes (Death, Other)
  Sender: FDA-Public Use
  Company Number: CA-JNJFOC-20091100917

PATIENT
  Sex: Male
  Weight: 80.5 kg

DRUGS (44)
  1. GOLIMUMAB [Suspect]
     Indication: RHEUMATOID ARTHRITIS
     Route: 058
  2. GOLIMUMAB [Suspect]
     Route: 058
  3. GOLIMUMAB [Suspect]
     Route: 058
  4. GOLIMUMAB [Suspect]
     Route: 058
  5. GOLIMUMAB [Suspect]
     Route: 058
  6. GOLIMUMAB [Suspect]
     Route: 058
  7. GOLIMUMAB [Suspect]
     Route: 058
  8. GOLIMUMAB [Suspect]
     Route: 058
  9. GOLIMUMAB [Suspect]
     Route: 058
  10. GOLIMUMAB [Suspect]
     Route: 058
  11. GOLIMUMAB [Suspect]
     Route: 058
  12. GOLIMUMAB [Suspect]
     Route: 058
  13. GOLIMUMAB [Suspect]
     Route: 058
  14. GOLIMUMAB [Suspect]
     Route: 058
  15. GOLIMUMAB [Suspect]
     Route: 058
  16. GOLIMUMAB [Suspect]
     Route: 058
  17. GOLIMUMAB [Suspect]
     Route: 058
  18. GOLIMUMAB [Suspect]
     Route: 058
  19. GOLIMUMAB [Suspect]
     Route: 058
  20. GOLIMUMAB [Suspect]
     Route: 058
  21. GOLIMUMAB [Suspect]
     Route: 058
  22. GOLIMUMAB [Suspect]
     Route: 058
  23. GOLIMUMAB [Suspect]
     Route: 058
  24. GOLIMUMAB [Suspect]
     Route: 058
  25. GOLIMUMAB [Suspect]
     Route: 058
  26. GOLIMUMAB [Suspect]
     Route: 058
  27. PLACEBO [Suspect]
     Indication: RHEUMATOID ARTHRITIS
     Route: 058
  28. PLACEBO [Suspect]
     Route: 058
  29. PLACEBO [Suspect]
     Route: 058
  30. PLACEBO [Suspect]
     Route: 058
  31. METHOTREXATE [Suspect]
     Indication: RHEUMATOID ARTHRITIS
     Route: 048
  32. METHOTREXATE [Suspect]
     Route: 048
  33. METHOTREXATE [Concomitant]
     Route: 048
  34. FLUOXETINE [Concomitant]
     Route: 048
  35. HYDROCORTISONE VALERATE [Concomitant]
     Route: 061
  36. TYLENOL COLD AND SINUS [Concomitant]
     Route: 048
  37. SPIRIVA [Concomitant]
     Route: 055
  38. ADVAIR DISKUS 100/50 [Concomitant]
     Route: 055
  39. RAMIPRIL [Concomitant]
     Route: 048
  40. ALL OTHER THERAPEUTIC PRODUCTS [Concomitant]
  41. SALBUTAMOL [Concomitant]
     Route: 055
  42. DICLOFENAC SODIUM [Concomitant]
     Route: 048
  43. RABEPRAZOLE SODIUM [Concomitant]
     Route: 048
  44. ATORVASTATIN CALCIUM [Concomitant]
     Route: 048

REACTIONS (1)
  - LUNG NEOPLASM MALIGNANT [None]
